FAERS Safety Report 7202231-4 (Version None)
Quarter: 2010Q4

REPORT INFORMATION
  Report Type: 
  Country: None (occurrence: None)
  Receive Date: 20101229
  Receipt Date: 20101220
  Transmission Date: 20110411
  Serious: Yes (Other)
  Sender: FDA-Public Use
  Company Number: US-ELI_LILLY_AND_COMPANY-US201011006568

PATIENT
  Sex: Female

DRUGS (8)
  1. HUMALOG MIX 75/25 [Suspect]
     Indication: DIABETES MELLITUS
     Dosage: 12 U, OTHER
     Dates: start: 20101119
  2. HUMALOG MIX 75/25 [Suspect]
     Dosage: 8 U, EACH EVENING
     Dates: start: 20101119
  3. HUMALOG MIX 75/25 [Suspect]
     Dosage: 12 U, OTHER
     Dates: start: 20101119
  4. HUMALOG MIX 75/25 [Suspect]
     Dosage: 8 U, EACH EVENING
     Dates: start: 20101119
  5. HUMALOG [Suspect]
     Indication: DIABETES MELLITUS
     Dosage: 5 U, OTHER
  6. HUMULIN L [Suspect]
     Indication: DIABETES MELLITUS
     Dates: start: 19870101
  7. LANTUS [Concomitant]
     Dosage: UNK, DAILY (1/D)
  8. METFORMIN [Concomitant]
     Dosage: 500 MG, 2/D

REACTIONS (6)
  - BLOOD GLUCOSE DECREASED [None]
  - BLOOD GLUCOSE INCREASED [None]
  - FEELING ABNORMAL [None]
  - GRAND MAL CONVULSION [None]
  - SOMNOLENCE [None]
  - WEIGHT DECREASED [None]
